FAERS Safety Report 13920504 (Version 1)
Quarter: 2017Q3

REPORT INFORMATION
  Report Type: Spontaneous
  Country: US (occurrence: US)
  Receive Date: 20170830
  Receipt Date: 20170830
  Transmission Date: 20171127
  Serious: No
  Sender: FDA-Public Use
  Company Number: US-BECTON DICKINSON-PI-05284

PATIENT

DRUGS (1)
  1. CHLORAPREP SINGLE SWABSTICK [Suspect]
     Active Substance: CHLORHEXIDINE GLUCONATE\ISOPROPYL ALCOHOL
     Indication: RASH
     Dosage: 0 ML, ONCE
     Route: 061
     Dates: start: 20080418, end: 20080418

REACTIONS (5)
  - Rash [Unknown]
  - Application site pruritus [Unknown]
  - Application site erythema [Unknown]
  - Application site papules [Unknown]
  - Urticaria [Unknown]

NARRATIVE: CASE EVENT DATE: 20080418
